FAERS Safety Report 6692559-9 (Version None)
Quarter: 2010Q2

REPORT INFORMATION
  Report Type: 
  Country: None (occurrence: None)
  Receive Date: 20100419
  Receipt Date: 20100405
  Transmission Date: 20101027
  Serious: Yes (Death)
  Sender: FDA-Public Use
  Company Number: RENA-1000270

PATIENT
  Age: 80 Year
  Sex: Male

DRUGS (11)
  1. RENAGEL [Suspect]
     Indication: HYPERPHOSPHATAEMIA
     Dosage: 1.6 G, BID, ORAL ; 0.8 G, BID,ORAL ; 1.6 G, BID, ORAL ; ORAL
     Route: 048
     Dates: start: 20080101, end: 20080301
  2. RENAGEL [Suspect]
     Indication: HYPERPHOSPHATAEMIA
     Dosage: 1.6 G, BID, ORAL ; 0.8 G, BID,ORAL ; 1.6 G, BID, ORAL ; ORAL
     Route: 048
     Dates: start: 20080301, end: 20080801
  3. RENAGEL [Suspect]
     Indication: HYPERPHOSPHATAEMIA
     Dosage: 1.6 G, BID, ORAL ; 0.8 G, BID,ORAL ; 1.6 G, BID, ORAL ; ORAL
     Route: 048
     Dates: start: 20080801, end: 20080901
  4. RENAGEL [Suspect]
     Indication: HYPERPHOSPHATAEMIA
     Dosage: 1.6 G, BID, ORAL ; 0.8 G, BID,ORAL ; 1.6 G, BID, ORAL ; ORAL
     Route: 048
     Dates: start: 20090101, end: 20090301
  5. PRE-SATE (CHLORPHENTERMINE HYDROCHLORIDE) [Concomitant]
  6. ERYTHROPOIETIN (ERYTHROPOIETIN) [Concomitant]
  7. CALCIUM CARBONATE [Concomitant]
  8. FORASEQ (BUDESONIDE, FORMOTEROL) [Concomitant]
  9. BUDESONIDE [Concomitant]
  10. B-COMPLEX (VITAMIN B NOS) [Concomitant]
  11. LEVOCARNITINE (LEVOCARNITINE) [Concomitant]

REACTIONS (4)
  - ECCHYMOSIS [None]
  - HAEMORRHAGE [None]
  - MYOCARDIAL INFARCTION [None]
  - PLATELET COUNT DECREASED [None]
